FAERS Safety Report 8351636-7 (Version None)
Quarter: 2012Q2

REPORT INFORMATION
  Report Type: 
  Country: None (occurrence: None)
  Receive Date: 20120511
  Receipt Date: 20120502
  Transmission Date: 20120825
  Serious: No
  Sender: FDA-Public Use
  Company Number: US-BIOGENIDEC-2012BI014495

PATIENT
  Sex: Female

DRUGS (7)
  1. DITROPAN [Concomitant]
     Indication: BLADDER DISORDER
     Dates: start: 20040101
  2. MARINOL [Concomitant]
     Indication: PAIN
     Dates: start: 20080101
  3. CYMBALTA [Concomitant]
     Indication: PAIN
     Dates: start: 20110101
  4. TYSABRI [Suspect]
     Route: 042
     Dates: start: 20080512, end: 20120312
  5. TYSABRI [Suspect]
     Indication: MULTIPLE SCLEROSIS
     Route: 042
     Dates: start: 20060825, end: 20070709
  6. RITALIN [Concomitant]
     Indication: RAPID EYE MOVEMENTS SLEEP ABNORMAL
     Dates: start: 20110101
  7. NEURONTIN [Concomitant]
     Indication: PAIN
     Dates: start: 20040101

REACTIONS (5)
  - CENTRAL NERVOUS SYSTEM LESION [None]
  - PAIN [None]
  - BALANCE DISORDER [None]
  - RAPID EYE MOVEMENTS SLEEP ABNORMAL [None]
  - FATIGUE [None]
